FAERS Safety Report 11797886 (Version 1)
Quarter: 2015Q4

REPORT INFORMATION
  Report Type: Spontaneous
  Country: ES (occurrence: ES)
  Receive Date: 20151203
  Receipt Date: 20151203
  Transmission Date: 20160305
  Serious: Yes (Death)
  Sender: FDA-Public Use
  Company Number: ES-IMPAX LABORATORIES, INC-2015-IPXL-01211

PATIENT
  Age: 48 Year
  Sex: Female
  Weight: 70 kg

DRUGS (3)
  1. LORAZEPAM. [Suspect]
     Active Substance: LORAZEPAM
     Indication: COMPLETED SUICIDE
     Dosage: 50 MG, UNK
     Route: 065
  2. IBUPROFEN. [Suspect]
     Active Substance: IBUPROFEN
     Indication: COMPLETED SUICIDE
     Dosage: UNK
     Route: 065
  3. GLYBURIDE. [Suspect]
     Active Substance: GLYBURIDE
     Indication: COMPLETED SUICIDE
     Dosage: 150 MG, UNK
     Route: 048

REACTIONS (6)
  - Brain oedema [Fatal]
  - Toxicity to various agents [Fatal]
  - Intentional overdose [Fatal]
  - Hypoglycaemia [Fatal]
  - Brain injury [Fatal]
  - Brain death [Fatal]
